FAERS Safety Report 8640994 (Version 2)
Quarter: 2012Q4

REPORT INFORMATION
  Report Type: 
  Country: IE (occurrence: IE)
  Receive Date: 20120628
  Receipt Date: 20121016
  Transmission Date: 20130627
  Serious: Yes (Hospitalization)
  Sender: FDA-Public Use
  Company Number: PHFR2012IE003693

PATIENT
  Sex: Female

DRUGS (7)
  1. CLOZARIL [Suspect]
     Indication: SCHIZOPHRENIA
     Dosage: UNK UKN, UNK
     Route: 048
     Dates: start: 20070501
  2. CLOZARIL [Suspect]
     Dosage: 300 mg daily
     Route: 048
     Dates: start: 2008
  3. ASPIRIN [Concomitant]
     Dosage: 75 mg daily
     Route: 048
  4. SILDENAFIL [Concomitant]
     Dosage: 40 mg daily
     Route: 048
  5. LISINOPRIL [Concomitant]
     Dosage: 5 mg daily
     Route: 048
  6. BISOPROLOL [Concomitant]
     Dosage: 1.25 mg daily
     Route: 048
  7. BOSENTAN [Concomitant]
     Dosage: 125 mg daily
     Route: 048

REACTIONS (3)
  - Cardiac disorder [Unknown]
  - Palpitations [Unknown]
  - Hypertension [Unknown]
